FAERS Safety Report 11018157 (Version 2)
Quarter: 2015Q2

REPORT INFORMATION
  Report Type: Spontaneous
  Country: US (occurrence: US)
  Receive Date: 20150412
  Receipt Date: 20150524
  Transmission Date: 20150821
  Serious: Yes (Other)
  Sender: FDA-Public Use
  Company Number: US-JNJFOC-20150211717

PATIENT

DRUGS (3)
  1. DEXRAZOXANE. [Suspect]
     Active Substance: DEXRAZOXANE
     Indication: NEUROBLASTOMA
     Route: 042
     Dates: start: 2009, end: 2011
  2. OXALIPLATIN. [Suspect]
     Active Substance: OXALIPLATIN
     Indication: NEUROBLASTOMA
     Route: 065
     Dates: start: 2009, end: 2011
  3. DOXORUBICIN HYDROCHLORIDE. [Suspect]
     Active Substance: DOXORUBICIN HYDROCHLORIDE
     Indication: NEUROBLASTOMA
     Route: 042
     Dates: start: 2009, end: 2011

REACTIONS (1)
  - Hypokalaemia [Unknown]
